FAERS Safety Report 7588780-8 (Version None)
Quarter: 2011Q3

REPORT INFORMATION
  Report Type: 
  Country: None (occurrence: None)
  Receive Date: 20110705
  Receipt Date: 20110622
  Transmission Date: 20111222
  Serious: Yes (Hospitalization)
  Sender: FDA-Public Use
  Company Number: ES-ELI_LILLY_AND_COMPANY-ES201106006896

PATIENT
  Sex: Female
  Weight: 57 kg

DRUGS (13)
  1. ATARAX [Concomitant]
     Dosage: 1 DF, BID
     Route: 048
  2. FENTANILO [Concomitant]
     Indication: PAIN
     Dosage: 1 DF, 3/W
     Route: 062
  3. OMEPRAZOLE [Concomitant]
     Indication: GASTRIC DISORDER
     Dosage: UNK, QD
     Route: 048
  4. NOCTAMID [Concomitant]
     Indication: SLEEP DISORDER
     Route: 048
  5. FLURAZEPAM [Concomitant]
     Indication: SLEEP DISORDER
     Route: 048
  6. ACETAMINOPHEN [Concomitant]
     Indication: PAIN
     Dosage: 1 DF, BID
     Route: 048
  7. POTASION [Concomitant]
     Route: 048
  8. FORTEO [Suspect]
     Indication: OSTEOPOROSIS
     Dosage: 20 UG, QD
     Route: 058
     Dates: start: 20110525
  9. TRYPTIZOL [Concomitant]
     Dosage: 25 MG, QD
     Route: 048
  10. NOLOTIL [Concomitant]
     Indication: PAIN
  11. PARACETAMOL W/TRAMADOL HYDROCHLORIDE [Concomitant]
     Route: 048
  12. LYRICA [Concomitant]
  13. ACFOL [Concomitant]

REACTIONS (2)
  - SPINAL COLUMN INJURY [None]
  - CEMENTOPLASTY [None]
